FAERS Safety Report 4646827-2 (Version None)
Quarter: 2005Q2

REPORT INFORMATION
  Report Type: 
  Country: None (occurrence: None)
  Receive Date: 20050331
  Receipt Date: 20050228
  Transmission Date: 20051028
  Serious: No
  Sender: FDA-Public Use
  Company Number: 05P-163-0292103-00

PATIENT
  Sex: Female

DRUGS (9)
  1. HUMIRA [Suspect]
     Indication: RHEUMATOID ARTHRITIS
     Dosage: 40 MG, 1 IN 2 WK, SUBCUTANEOUS
     Route: 058
     Dates: start: 20041101
  2. GLIPIZIDE [Concomitant]
  3. ROSIGLITAZONE MALEATE [Concomitant]
  4. INSULIN GLARGINE [Concomitant]
  5. CETIRIZINE HYDROCHLORIDE [Concomitant]
  6. MOEXIPRIL HCL [Concomitant]
  7. AMLODIPINE BESYLATE [Concomitant]
  8. ATROVASTATIN [Concomitant]
  9. ASPIRIN [Concomitant]

REACTIONS (2)
  - OEDEMA PERIPHERAL [None]
  - SWELLING FACE [None]
